FAERS Safety Report 5041055-3 (Version None)
Quarter: 2006Q2

REPORT INFORMATION
  Report Type: 
  Country: None (occurrence: None)
  Receive Date: 20060630
  Receipt Date: 20060630
  Transmission Date: 20061013
  Serious: Yes (Other)
  Sender: FDA-Public Use
  Company Number: None

PATIENT
  Age: 64 Year
  Sex: Male
  Weight: 68 kg

DRUGS (1)
  1. PACLITAXEL [Suspect]
     Indication: LUNG NEOPLASM MALIGNANT
     Dosage: 80 MG ONCE IV DRIP
     Route: 041
     Dates: start: 20060411, end: 20060411

REACTIONS (3)
  - APHASIA [None]
  - CYANOSIS [None]
  - DYSPNOEA [None]
